FAERS Safety Report 19384773 (Version 2)
Quarter: 2022Q4

REPORT INFORMATION
  Report Type: Spontaneous
  Country: DE (occurrence: DE)
  Receive Date: 20210608
  Receipt Date: 20221024
  Transmission Date: 20230113
  Serious: Yes (Hospitalization)
  Sender: FDA-Public Use
  Company Number: None

PATIENT
  Age: 62 Year
  Sex: Female

DRUGS (9)
  1. MOXONIDIN 1 A PHARM [Concomitant]
     Dosage: 4 MG, 1-0-0-0, TABLETTEN
     Route: 048
  2. LANSOPRAZOL 1 A PHARMA [Concomitant]
     Dosage: 30 MG, 1-0-0-0
     Route: 048
  3. TRULICITY [Suspect]
     Active Substance: DULAGLUTIDE
     Indication: Product used for unknown indication
     Dosage: 1.5 MG
     Route: 058
  4. LEVOTHYROXINE SODIUM [Concomitant]
     Active Substance: LEVOTHYROXINE SODIUM
     Dosage: 75 ?G, 1-0-0-0
     Route: 048
  5. JARDIANCE [Suspect]
     Active Substance: EMPAGLIFLOZIN
     Indication: Product used for unknown indication
     Dosage: 10 MG, 1-0-0-0
     Route: 048
  6. LEVEMIR [Suspect]
     Active Substance: INSULIN DETEMIR
     Indication: Product used for unknown indication
     Dosage: 36 IE, 0-0-1-0
     Route: 058
  7. ATORVASTATIN CALCIUM [Concomitant]
     Active Substance: ATORVASTATIN CALCIUM
     Dosage: 10 MG, 0-0-1-0
     Route: 048
  8. nebivolol AL 5mg [Concomitant]
     Dosage: 5 MG, 1-0-0-0, TABLETTEN
     Route: 048
  9. valsartan-1A Pharma 320mg [Concomitant]
     Dosage: 320 MG, 1-0-0-0, TABLETTEN
     Route: 048

REACTIONS (3)
  - Erysipelas [Unknown]
  - Hyperglycaemia [Unknown]
  - Product monitoring error [Unknown]
